FAERS Safety Report 18258876 (Version 1)
Quarter: 2020Q3

REPORT INFORMATION
  Report Type: Spontaneous
  Country: US (occurrence: US)
  Receive Date: 20200911
  Receipt Date: 20200911
  Transmission Date: 20201103
  Serious: No
  Sender: FDA-Public Use
  Company Number: US-PFIZER INC-2020350122

PATIENT
  Age: 69 Year
  Sex: Male
  Weight: 74.39 kg

DRUGS (1)
  1. ADVIL [Suspect]
     Active Substance: IBUPROFEN
     Dosage: UNK (800MG TAKEN 2?4 TIMES DAILY AS LONG AS HIS KIDNEYS ARE NOT SCREAMING.)
     Route: 048

REACTIONS (2)
  - Overdose [Unknown]
  - Renal disorder [Unknown]
